FAERS Safety Report 8818838 (Version 1)
Quarter: 2012Q4

REPORT INFORMATION
  Report Type: 
  Country: FR (occurrence: FR)
  Receive Date: 20121001
  Receipt Date: 20121001
  Transmission Date: 20130627
  Serious: Yes (Life-Threatening, Hospitalization, Other)
  Sender: FDA-Public Use
  Company Number: PHHY2012FR083983

PATIENT
  Age: 72 Year
  Sex: Female

DRUGS (6)
  1. EUCREAS [Suspect]
     Dosage: 1000 mg metf and 50 mg vild
     Route: 048
     Dates: end: 20120710
  2. COTAREG [Suspect]
     Dosage: 80 mg vals and 12.5 mg hydr
     Route: 048
     Dates: end: 20120710
  3. ESOMEPRAZOLE [Concomitant]
  4. BROMAZEPAM [Concomitant]
  5. METFORMIN [Concomitant]
     Dosage: 1 g, daily
  6. DAFALGAN CODEINE [Concomitant]
     Dosage: 6 DF, daily

REACTIONS (12)
  - Lactic acidosis [Recovered/Resolved]
  - General physical health deterioration [Unknown]
  - Fracture [Unknown]
  - Fall [Unknown]
  - Dehydration [Unknown]
  - Renal failure [Recovering/Resolving]
  - Blood creatinine increased [Unknown]
  - Hyperkalaemia [Unknown]
  - Urinary tract infection bacterial [Unknown]
  - Productive cough [Unknown]
  - Sputum purulent [Unknown]
  - Abnormal behaviour [Unknown]
